FAERS Safety Report 24748338 (Version 1)
Quarter: 2024Q4

REPORT INFORMATION
  Report Type: Spontaneous
  Country: GB (occurrence: GB)
  Receive Date: 20241218
  Receipt Date: 20241218
  Transmission Date: 20250115
  Serious: Yes (Other)
  Sender: ACCORD
  Company Number: None

PATIENT
  Age: 66 Year
  Sex: Male
  Weight: 93 kg

DRUGS (3)
  1. EZETIMIBE [Suspect]
     Active Substance: EZETIMIBE
     Indication: Product used for unknown indication
     Dosage: ONE TO BE TAKEN EACH DAY
     Dates: start: 20241111, end: 20241122
  2. LANSOPRAZOLE [Concomitant]
     Active Substance: LANSOPRAZOLE
     Dosage: ONE TO BE TAKEN EACH MORNING
     Dates: start: 20241010
  3. NAPROXEN [Concomitant]
     Active Substance: NAPROXEN
     Dosage: ONE TO BE TAKEN TWICE A DAY
     Dates: start: 20241114

REACTIONS (1)
  - Musculoskeletal chest pain [Recovered/Resolved]

NARRATIVE: CASE EVENT DATE: 20241123
